FAERS Safety Report 20368277 (Version 2)
Quarter: 2022Q1

REPORT INFORMATION
  Report Type: Report from Study
  Country: CL (occurrence: None)
  Receive Date: 20220124
  Receipt Date: 20220307
  Transmission Date: 20220423
  Serious: Yes (Hospitalization)
  Sender: FDA-Public Use
  Company Number: CL-ROCHE-3002398

PATIENT
  Age: 59 Year
  Sex: Female
  Weight: 75.5 kg

DRUGS (12)
  1. ALECTINIB [Suspect]
     Active Substance: ALECTINIB
     Indication: Non-small cell lung cancer metastatic
     Dosage: ON 28/DEC/2021, RECEIVED MOST RECENT DOSE OF ALECTENIB (600 MG) BEFORE EVENT.?DOSE CONCENTRATION: 15
     Route: 048
     Dates: start: 20180511
  2. MORPHINE [Concomitant]
     Active Substance: MORPHINE
     Indication: Pleuritic pain
     Dosage: YES
     Route: 055
     Dates: start: 2018
  3. PREGABALIN [Concomitant]
     Active Substance: PREGABALIN
     Indication: Pleuritic pain
     Dosage: YES
     Dates: start: 2018
  4. BUPRENORPHINE [Concomitant]
     Active Substance: BUPRENORPHINE
     Indication: Pleuritic pain
     Dosage: YES
     Route: 062
     Dates: start: 2018
  5. ALBUTEROL [Concomitant]
     Active Substance: ALBUTEROL
     Indication: Bronchitis
     Dosage: DRUG DOSE FIRST ADMINISTERED IS 2 PUFF ;ONGOING: YES
     Route: 055
     Dates: start: 20190603
  6. SALMETEROL [Concomitant]
     Active Substance: SALMETEROL
     Indication: Asthma
     Dosage: DRUG DOSE FIRST ADMINISTERED IS 2 PUFF ;ONGOING: YES
     Route: 055
     Dates: start: 20190801
  7. FENOTEROL HYDROBROMIDE\IPRATROPIUM BROMIDE [Concomitant]
     Active Substance: FENOTEROL HYDROBROMIDE\IPRATROPIUM BROMIDE
     Indication: Asthma
     Dosage: DRUG DOSE FIRST ADMINISTERED IS 2 PUFF ;ONGOING: YES
     Route: 055
     Dates: start: 20190801
  8. MAGNATIL [Concomitant]
     Indication: Muscle spasms
     Dosage: DRUG DOSE FIRST ADMINISTERED IS 1 CAPSULE ;ONGOING: YES
     Dates: start: 20210408
  9. UREA [Concomitant]
     Active Substance: UREA
     Indication: Xerosis
     Dosage: YES
     Route: 061
     Dates: start: 20210729
  10. NITROFURANTOIN [Concomitant]
     Active Substance: NITROFURANTOIN
     Indication: Urinary tract infection
     Dosage: YES
     Dates: start: 20210924
  11. FLUTICASONE [Concomitant]
     Active Substance: FLUTICASONE
     Indication: Asthma
     Dosage: YES
     Dates: start: 20190801
  12. CLONAZEPAM [Concomitant]
     Active Substance: CLONAZEPAM
     Indication: Pleuritic pain
     Route: 048
     Dates: start: 2018

REACTIONS (1)
  - Cholecystitis acute [Recovered/Resolved]

NARRATIVE: CASE EVENT DATE: 20211228
